FAERS Safety Report 15651931 (Version 9)
Quarter: 2019Q2

REPORT INFORMATION
  Report Type: Report from Study
  Country: None (occurrence: IE)
  Receive Date: 20181123
  Receipt Date: 20190425
  Transmission Date: 20190711
  Serious: Yes (Other)
  Sender: FDA-Public Use
  Company Number: IE-ABBVIE-18S-229-2502390-00

PATIENT
  Age: 73 Year
  Sex: Male

DRUGS (24)
  1. DUODOPA [Suspect]
     Active Substance: CARBIDOPA\LEVODOPA
     Dosage: CONTINUOUS RATE 3.6ML/HR
     Route: 050
     Dates: start: 20190222, end: 20190419
  2. NEULASTA [Concomitant]
     Active Substance: PEGFILGRASTIM
     Indication: PRODUCT USED FOR UNKNOWN INDICATION
     Route: 050
  3. DUODOPA [Suspect]
     Active Substance: CARBIDOPA\LEVODOPA
     Dosage: CD 2.8 MLS/HOUR
     Route: 050
     Dates: start: 2018, end: 201811
  4. DUODOPA [Suspect]
     Active Substance: CARBIDOPA\LEVODOPA
     Dosage: 1 CASSETTE, ONCE DAILY?CD: 3.4MLS/HOUR
     Route: 050
     Dates: start: 20190218, end: 20190222
  5. ELTROXIN [Concomitant]
     Active Substance: LEVOTHYROXINE
     Indication: PRODUCT USED FOR UNKNOWN INDICATION
     Route: 048
  6. SINEMET CR [Concomitant]
     Active Substance: CARBIDOPA\LEVODOPA
     Indication: PRODUCT USED FOR UNKNOWN INDICATION
     Dosage: 200/500?NIGHT
  7. RIVOTRIL [Concomitant]
     Active Substance: CLONAZEPAM
     Indication: PRODUCT USED FOR UNKNOWN INDICATION
     Dosage: NIGHT
     Route: 048
  8. LIPITOR [Concomitant]
     Active Substance: ATORVASTATIN CALCIUM
     Indication: PRODUCT USED FOR UNKNOWN INDICATION
     Dosage: NIGHT
  9. PREGABLIN [Concomitant]
     Active Substance: PREGABALIN
     Indication: PRODUCT USED FOR UNKNOWN INDICATION
     Route: 050
  10. MELATONIN [Concomitant]
     Active Substance: MELATONIN
     Indication: PRODUCT USED FOR UNKNOWN INDICATION
     Dosage: NIGHT
  11. VITAMIN B12 [Concomitant]
     Active Substance: CYANOCOBALAMIN
     Indication: PRODUCT USED FOR UNKNOWN INDICATION
  12. AMLODIPINE [Concomitant]
     Active Substance: AMLODIPINE BESYLATE
     Indication: PRODUCT USED FOR UNKNOWN INDICATION
  13. AZILECT [Concomitant]
     Active Substance: RASAGILINE MESYLATE
     Indication: PRODUCT USED FOR UNKNOWN INDICATION
  14. DUODOPA [Suspect]
     Active Substance: CARBIDOPA\LEVODOPA
     Indication: PARKINSON^S DISEASE
     Dosage: 1 CASSETTE ONCE DAILY?CD 2.9MLS
     Route: 050
     Dates: start: 20160318, end: 201809
  15. DUODOPA [Suspect]
     Active Substance: CARBIDOPA\LEVODOPA
     Dosage: CD DECREASED FROM 3.8MLS/HOUR TO 3.7MLS/HOUR
     Route: 050
     Dates: start: 20190111, end: 20190218
  16. DUODOPA [Suspect]
     Active Substance: CARBIDOPA\LEVODOPA
     Dosage: 1 CASSETTE. ONCE DAILY?CR: 3.7 MLS/HR
     Route: 050
     Dates: start: 20190419
  17. ASPIRIN. [Concomitant]
     Active Substance: ASPIRIN
     Indication: PRODUCT USED FOR UNKNOWN INDICATION
  18. LYRICA [Concomitant]
     Active Substance: PREGABALIN
     Indication: PRODUCT USED FOR UNKNOWN INDICATION
     Route: 048
  19. VERSATIS [Concomitant]
     Active Substance: LIDOCAINE
     Indication: PRODUCT USED FOR UNKNOWN INDICATION
     Dosage: ONCE DAILY OR AS DIRECTED?PATCH
  20. ELTOXIN [Concomitant]
     Indication: PRODUCT USED FOR UNKNOWN INDICATION
  21. DUODOPA [Suspect]
     Active Substance: CARBIDOPA\LEVODOPA
     Dosage: MD INCREASED TO : 7.8 ML
     Route: 050
     Dates: start: 201811
  22. REQUIP [Concomitant]
     Active Substance: ROPINIROLE HYDROCHLORIDE
     Indication: PRODUCT USED FOR UNKNOWN INDICATION
  23. DUODOPA [Suspect]
     Active Substance: CARBIDOPA\LEVODOPA
     Dosage: CD INCREASED FROM 2.9MLS - 3.1MLS PER HR.
     Route: 050
     Dates: start: 201809, end: 2018
  24. DUODOPA [Suspect]
     Active Substance: CARBIDOPA\LEVODOPA
     Dosage: CD 3.3 MLS/HOUR
     Route: 050
     Dates: start: 201811, end: 201811

REACTIONS (18)
  - Chronic lymphocytic leukaemia [Not Recovered/Not Resolved]
  - Poor quality sleep [Recovering/Resolving]
  - Balance disorder [Not Recovered/Not Resolved]
  - On and off phenomenon [Not Recovered/Not Resolved]
  - Drug ineffective [Not Recovered/Not Resolved]
  - On and off phenomenon [Recovered/Resolved]
  - Restlessness [Not Recovered/Not Resolved]
  - On and off phenomenon [Recovered/Resolved]
  - Dyskinesia [Recovered/Resolved]
  - Nasopharyngitis [Not Recovered/Not Resolved]
  - Speech disorder [Not Recovered/Not Resolved]
  - On and off phenomenon [Recovered/Resolved]
  - General physical health deterioration [Not Recovered/Not Resolved]
  - Dysphagia [Not Recovered/Not Resolved]
  - Anxiety [Not Recovered/Not Resolved]
  - Musculoskeletal stiffness [Not Recovered/Not Resolved]
  - Memory impairment [Not Recovered/Not Resolved]
  - Therapeutic product effect incomplete [Not Recovered/Not Resolved]

NARRATIVE: CASE EVENT DATE: 20180918
